FAERS Safety Report 18391302 (Version 1)
Quarter: 2020Q4

REPORT INFORMATION
  Report Type: Spontaneous
  Country: US (occurrence: US)
  Receive Date: 20201016
  Receipt Date: 20201016
  Transmission Date: 20210114
  Serious: No
  Sender: FDA-Public Use
  Company Number: US-BAYER-2020-221122

PATIENT
  Age: 82 Year
  Sex: Female

DRUGS (4)
  1. MIRALAX [Suspect]
     Active Substance: POLYETHYLENE GLYCOL 3350
     Indication: GASTROINTESTINAL DISORDER
     Dosage: 0.5 DF, QD
     Route: 048
  2. VITAMINS NOS [Concomitant]
     Active Substance: VITAMINS
  3. CALCIUM [Concomitant]
     Active Substance: CALCIUM
  4. OMEGA [OMEPRAZOLE] [Concomitant]
     Active Substance: OMEPRAZOLE

REACTIONS (3)
  - Incorrect product administration duration [Unknown]
  - Prescribed underdose [Unknown]
  - Incorrect dose administered [Unknown]
